FAERS Safety Report 8979211 (Version 1)
Quarter: 2012Q4

REPORT INFORMATION
  Report Type: 
  Country: FR (occurrence: FR)
  Receive Date: 20121221
  Receipt Date: 20121221
  Transmission Date: 20130627
  Serious: Yes (Hospitalization)
  Sender: FDA-Public Use
  Company Number: FR-GLAXOSMITHKLINE-B0852235A

PATIENT
  Age: 83 None
  Sex: Male

DRUGS (8)
  1. ZELITREX [Suspect]
     Indication: HERPES ZOSTER
     Route: 048
     Dates: start: 20121112, end: 20121118
  2. AMOXICILLIN [Concomitant]
     Indication: CHRONIC OBSTRUCTIVE PULMONARY DISEASE
     Dosage: 1G Three times per day
     Route: 048
     Dates: start: 20121112
  3. LEVOTHYROX [Concomitant]
     Dosage: 100MCG Per day
     Route: 048
  4. AMIODARONE [Concomitant]
     Route: 048
  5. VALSARTAN [Concomitant]
     Dosage: 160MG Per day
     Route: 048
  6. BECLOMETHASONE DIPROPIONATE + FORMOTEROL [Concomitant]
     Dosage: 2PUFF Twice per day
     Route: 055
  7. SERESTA [Concomitant]
     Dosage: 10MG Per day
     Route: 048
  8. PREVISCAN [Concomitant]
     Dosage: 5MG Per day
     Route: 048

REACTIONS (4)
  - Dyspnoea [Recovered/Resolved]
  - Hyperhidrosis [Recovered/Resolved]
  - Vertigo [Recovered/Resolved]
  - Nausea [Recovered/Resolved]
